FAERS Safety Report 10225687 (Version 1)
Quarter: 2014Q2

REPORT INFORMATION
  Report Type: Spontaneous
  Country: US (occurrence: US)
  Receive Date: 20140609
  Receipt Date: 20140609
  Transmission Date: 20141212
  Serious: No
  Sender: FDA-Public Use
  Company Number: US-ASTELLAS-2013US007888

PATIENT
  Sex: Male

DRUGS (5)
  1. PROGRAF [Suspect]
     Indication: COLITIS
     Route: 065
  2. REMICADE [Concomitant]
     Indication: COLITIS
     Route: 065
  3. HUMIRA [Concomitant]
     Indication: COLITIS
     Route: 065
  4. CELLCEPT                           /01275102/ [Concomitant]
     Indication: COLITIS
     Route: 065
  5. METHOTREXATE [Concomitant]
     Indication: COLITIS
     Route: 065

REACTIONS (2)
  - Off label use [Unknown]
  - Drug ineffective [Unknown]
